FAERS Safety Report 6286389-X (Version None)
Quarter: 2009Q3

REPORT INFORMATION
  Report Type: 
  Country: None (occurrence: None)
  Receive Date: 20090727
  Receipt Date: 20090727
  Transmission Date: 20100115
  Serious: Yes (Other)
  Sender: FDA-Public Use
  Company Number: None

PATIENT
  Age: 48 Year
  Sex: Female
  Weight: 54.4316 kg

DRUGS (2)
  1. LEXAPRO [Suspect]
     Indication: ANXIETY DISORDER
     Dosage: 30 MG. ONCE A DAY
     Dates: start: 20070628
  2. LEXAPRO [Suspect]
     Indication: OBSESSIVE-COMPULSIVE DISORDER
     Dosage: 30 MG. ONCE A DAY
     Dates: start: 20070628

REACTIONS (3)
  - IMPULSE-CONTROL DISORDER [None]
  - LIBIDO INCREASED [None]
  - MANIA [None]
